FAERS Safety Report 7460931-5 (Version None)
Quarter: 2011Q2

REPORT INFORMATION
  Report Type: 
  Country: None (occurrence: None)
  Receive Date: 20110505
  Receipt Date: 20110426
  Transmission Date: 20111010
  Serious: Yes (Other)
  Sender: FDA-Public Use
  Company Number: BR-GENENTECH-302684

PATIENT
  Sex: Female
  Weight: 65 kg

DRUGS (14)
  1. RITUXIMAB [Suspect]
     Indication: SJOGREN'S SYNDROME
     Dosage: 1000 MG, UNK
     Route: 042
     Dates: start: 20100512, end: 20101126
  2. POLARAMINE [Concomitant]
     Indication: PRODUCT USED FOR UNKNOWN INDICATION
  3. PARACETAMOL [Concomitant]
     Indication: PREMEDICATION
     Dosage: UNK
     Dates: start: 20101128, end: 20101128
  4. CALCIFEROL [Suspect]
     Indication: PRODUCT USED FOR UNKNOWN INDICATION
  5. AMBROXOL [Concomitant]
     Indication: PRODUCT USED FOR UNKNOWN INDICATION
  6. ATENOLOL [Concomitant]
     Indication: HYPERTENSION
     Dosage: 50 MG, UNK
  7. TAMARINE (BRAZIL) [Concomitant]
     Indication: PRODUCT USED FOR UNKNOWN INDICATION
  8. CENTRUM [Concomitant]
     Indication: PRODUCT USED FOR UNKNOWN INDICATION
  9. RITUXIMAB [Suspect]
     Indication: RHEUMATOID ARTHRITIS
  10. SOMALGIN [Concomitant]
     Indication: PRODUCT USED FOR UNKNOWN INDICATION
     Dosage: 100 MG, UNK
  11. LINSEED [Concomitant]
     Indication: PRODUCT USED FOR UNKNOWN INDICATION
  12. FLUCONAZOLE [Concomitant]
     Indication: PRODUCT USED FOR UNKNOWN INDICATION
  13. ALPRAZOLAM [Concomitant]
     Indication: SEDATION
     Dosage: 1 MG, UNK
  14. ITRACONAZOLE [Concomitant]
     Indication: PRODUCT USED FOR UNKNOWN INDICATION
     Dosage: 100 MG, UNK

REACTIONS (17)
  - INFLUENZA [None]
  - FEELING ABNORMAL [None]
  - TACHYCARDIA [None]
  - LAZINESS [None]
  - BLOOD PRESSURE INCREASED [None]
  - ALOPECIA [None]
  - SINUSITIS [None]
  - PETECHIAE [None]
  - PSYCHIATRIC SYMPTOM [None]
  - WEIGHT INCREASED [None]
  - NASOPHARYNGITIS [None]
  - SUICIDAL IDEATION [None]
  - COUGH [None]
  - PAIN [None]
  - URTICARIA [None]
  - OSTEOPOROSIS [None]
  - MALAISE [None]
